FAERS Safety Report 6292984-4 (Version None)
Quarter: 2009Q3

REPORT INFORMATION
  Report Type: 
  Country: None (occurrence: None)
  Receive Date: 20090731
  Receipt Date: 20090727
  Transmission Date: 20100115
  Serious: Yes (Other)
  Sender: FDA-Public Use
  Company Number: US-JNJFOC-20090708747

PATIENT
  Sex: Female

DRUGS (1)
  1. TOPAMAX [Suspect]
     Indication: CONVULSION
     Route: 048

REACTIONS (3)
  - APHASIA [None]
  - NEUROPATHY PERIPHERAL [None]
  - PARAESTHESIA [None]
